FAERS Safety Report 8107323-3 (Version None)
Quarter: 2012Q1

REPORT INFORMATION
  Report Type: 
  Country: None (occurrence: None)
  Receive Date: 20120202
  Receipt Date: 20120125
  Transmission Date: 20120608
  Serious: Yes (Other)
  Sender: FDA-Public Use
  Company Number: GB-PFIZER INC-2012021742

PATIENT
  Age: 39 Year
  Sex: Female

DRUGS (7)
  1. CEFUROXIME [Concomitant]
  2. LIDOCAINE [Concomitant]
  3. CARBOPROST TROMETAMOL [Suspect]
     Indication: POSTPARTUM HAEMORRHAGE
     Dosage: 250 UG, UNK
     Route: 030
  4. OXYTOCIN [Concomitant]
  5. GELOFUSINE [Concomitant]
  6. ONDANSETRON [Concomitant]
  7. DIAMORPHINE [Concomitant]

REACTIONS (7)
  - SWELLING FACE [None]
  - RASH [None]
  - INJECTION SITE SWELLING [None]
  - DYSPNOEA [None]
  - ANAPHYLACTIC REACTION [None]
  - THROAT TIGHTNESS [None]
  - LIP SWELLING [None]
